FAERS Safety Report 7028619-2 (Version None)
Quarter: 2010Q4

REPORT INFORMATION
  Report Type: 
  Country: None (occurrence: None)
  Receive Date: 20101005
  Receipt Date: 20100706
  Transmission Date: 20110411
  Serious: Yes (Hospitalization)
  Sender: FDA-Public Use
  Company Number: CA-SANOFI-AVENTIS-2010SA023106

PATIENT
  Age: 58 Year
  Sex: Male
  Weight: 99 kg

DRUGS (26)
  1. TAXOTERE [Suspect]
     Indication: PROSTATE CANCER
     Route: 041
     Dates: start: 20081118, end: 20081118
  2. TAXOTERE [Suspect]
     Route: 041
     Dates: start: 20090525, end: 20090525
  3. ELIGARD [Suspect]
     Indication: PROSTATE CANCER
     Route: 065
     Dates: start: 20081118, end: 20081118
  4. ELIGARD [Suspect]
     Route: 065
     Dates: start: 20100118, end: 20100118
  5. CASODEX [Suspect]
     Indication: PROSTATE CANCER
     Route: 065
     Dates: start: 20081118, end: 20081217
  6. ACCURETIC [Concomitant]
     Indication: HYPERTENSION
     Route: 048
     Dates: start: 20090916
  7. ATORVASTATIN [Concomitant]
     Route: 048
     Dates: start: 20090201
  8. EZETROL [Concomitant]
     Route: 048
     Dates: start: 20090201
  9. AMITRIPTYLINE [Concomitant]
     Indication: ANXIETY
     Route: 048
     Dates: start: 20080501
  10. MEGESTROL [Concomitant]
     Route: 048
     Dates: start: 20090915
  11. ASPIRIN [Concomitant]
  12. VITAMIN B-12 [Concomitant]
     Route: 048
     Dates: start: 20050101
  13. CENTRUM [Concomitant]
     Route: 048
     Dates: start: 20050101
  14. ALL OTHER THERAPEUTIC PRODUCTS [Concomitant]
  15. ALL OTHER THERAPEUTIC PRODUCTS [Concomitant]
  16. ANTIINFLAMMATORY/ANTIRHEUMATIC NON-STEROIDS [Concomitant]
  17. ANTIBIOTICS [Concomitant]
  18. ANTIHYPERTENSIVES [Concomitant]
  19. CHOLESTEROL- AND TRIGLYCERIDE REDUCERS [Concomitant]
  20. TRICYCLIC ANTIDEPRESSANTS [Concomitant]
  21. TRIMOX [Concomitant]
     Indication: ERECTILE DYSFUNCTION
     Route: 017
     Dates: start: 20071101
  22. PROPRANOLOL [Concomitant]
     Indication: HYPERTENSION
     Route: 048
     Dates: start: 20080501
  23. ADVIL LIQUI-GELS [Concomitant]
     Indication: BACK PAIN
     Dosage: 200 TO 600 MG
     Route: 048
     Dates: start: 19800101
  24. REFRESH [Concomitant]
     Dosage: 3 TO 4 TIMES A DAY
     Route: 047
     Dates: start: 20090430
  25. ROSUVASTATIN CALCIUM [Concomitant]
     Route: 048
     Dates: start: 20020101, end: 20090517
  26. ELAVIL [Concomitant]
     Indication: INSOMNIA
     Route: 048
     Dates: start: 20091001

REACTIONS (1)
  - PULMONARY EMBOLISM [None]
